FAERS Safety Report 16990363 (Version 1)
Quarter: 2019Q4

REPORT INFORMATION
  Report Type: Spontaneous
  Country: GB (occurrence: GB)
  Receive Date: 20191103
  Receipt Date: 20191103
  Transmission Date: 20200122
  Serious: No
  Sender: FDA-Public Use
  Company Number: None

PATIENT
  Age: 37 Year
  Sex: Male
  Weight: 90 kg

DRUGS (4)
  1. COD LIVER OIL [Concomitant]
     Active Substance: COD LIVER OIL
  2. GREEN TEA SUPPLEMENTS [Concomitant]
  3. CIPROFLOXACIN. [Suspect]
     Active Substance: CIPROFLOXACIN
     Indication: PRODUCT PRESCRIBING ERROR
     Route: 048
  4. MAGNESIUM MALATE. [Concomitant]
     Active Substance: MAGNESIUM MALATE

REACTIONS (5)
  - Arthropathy [None]
  - Disability [None]
  - Adverse drug reaction [None]
  - Nerve injury [None]
  - Tendon disorder [None]

NARRATIVE: CASE EVENT DATE: 20190201
